FAERS Safety Report 5354657-1 (Version None)
Quarter: 2007Q2

REPORT INFORMATION
  Report Type: 
  Country: None (occurrence: None)
  Receive Date: 20070612
  Receipt Date: 20070529
  Transmission Date: 20071010
  Serious: Yes (Death, Hospitalization)
  Sender: FDA-Public Use
  Company Number: GB-AMGEN-UK227178

PATIENT
  Age: 36 Year
  Sex: Male

DRUGS (4)
  1. NEUPOGEN [Suspect]
     Indication: CHEMOTHERAPY
     Route: 058
     Dates: end: 20070401
  2. CYTOSINE ARABINOSIDE [Suspect]
     Route: 042
     Dates: end: 20070401
  3. FLUDARABINE PHOSPHATE [Suspect]
     Route: 042
     Dates: end: 20070401
  4. IDARUBICIN HCL [Suspect]
     Route: 042
     Dates: end: 20070401

REACTIONS (5)
  - ABDOMINAL DISCOMFORT [None]
  - ACUTE MYELOID LEUKAEMIA [None]
  - FEBRILE NEUTROPENIA [None]
  - MULTI-ORGAN FAILURE [None]
  - NEUTROPENIC SEPSIS [None]
